FAERS Safety Report 8746021 (Version 2)
Quarter: 2012Q4

REPORT INFORMATION
  Report Type: 
  Country: TR (occurrence: TR)
  Receive Date: 20120827
  Receipt Date: 20120905
  Transmission Date: 20130627
  Serious: Yes (Other)
  Sender: FDA-Public Use
  Company Number: TR-RANBAXY-2012RR-59221

PATIENT
  Age: 33 Year
  Sex: Male

DRUGS (4)
  1. CEFAZOLIN [Suspect]
     Indication: UPPER RESPIRATORY TRACT INFECTION
     Dosage: UNK
     Route: 042
  2. AMOXICILLIN/CLAVULANIC ACID [Suspect]
     Indication: UPPER RESPIRATORY TRACT INFECTION
     Dosage: UNK
     Route: 048
  3. MORPHINE [Suspect]
     Indication: PAIN
     Dosage: 2 mg, single
     Route: 042
  4. METHIMAZOLE [Concomitant]
     Indication: UPPER RESPIRATORY TRACT INFECTION
     Dosage: UNK
     Route: 042

REACTIONS (3)
  - Kounis syndrome [Recovered/Resolved]
  - Acute coronary syndrome [Recovered/Resolved]
  - Hypersensitivity [Unknown]
